FAERS Safety Report 12355526 (Version 1)
Quarter: 2016Q2

REPORT INFORMATION
  Report Type: Spontaneous
  Country: US (occurrence: US)
  Receive Date: 20160511
  Receipt Date: 20160511
  Transmission Date: 20160815
  Serious: No
  Sender: FDA-Public Use
  Company Number: US-ENDO PHARMACEUTICALS INC.-2016-002339

PATIENT
  Sex: Male
  Weight: 111.68 kg

DRUGS (1)
  1. XIAFLEX [Suspect]
     Active Substance: COLLAGENASE CLOSTRIDIUM HISTOLYTICUM
     Indication: PEYRONIE^S DISEASE
     Route: 026
     Dates: start: 2015, end: 2016

REACTIONS (4)
  - Wrong technique in product usage process [Recovered/Resolved]
  - Penile pain [Recovered/Resolved]
  - Inappropriate schedule of drug administration [Recovered/Resolved]
  - Penile swelling [Recovered/Resolved]

NARRATIVE: CASE EVENT DATE: 2015
